FAERS Safety Report 20974130 (Version 1)
Quarter: 2022Q2

REPORT INFORMATION
  Report Type: Report from Study
  Country: GB (occurrence: GB)
  Receive Date: 20220617
  Receipt Date: 20220617
  Transmission Date: 20220720
  Serious: Yes (Other)
  Sender: FDA-Public Use
  Company Number: GB-SAMSUNG BIOEPIS-SB-2021-29492

PATIENT

DRUGS (7)
  1. PREDNISOLONE [Concomitant]
     Active Substance: PREDNISOLONE
     Indication: Colitis ulcerative
     Dosage: UNK
     Route: 065
  2. IMRALDI [Suspect]
     Active Substance: ADALIMUMAB
     Indication: Colitis ulcerative
     Dosage: 40 MG, WEEKLY
     Route: 058
  3. IMRALDI [Suspect]
     Active Substance: ADALIMUMAB
     Dosage: 160 MG (WEEK ZERO)
     Route: 058
     Dates: start: 20211122
  4. IMRALDI [Suspect]
     Active Substance: ADALIMUMAB
     Dosage: 40 MG IN 2 WEEK
     Route: 058
  5. IMRALDI [Suspect]
     Active Substance: ADALIMUMAB
     Dosage: 80 MG (WEEK TWO)
     Route: 058
  6. BUTYLSCOPOLAMINE BROMIDE [Concomitant]
     Active Substance: BUTYLSCOPOLAMINE BROMIDE
     Dosage: UNK
  7. MESALAMINE [Concomitant]
     Active Substance: MESALAMINE
     Dosage: UNK

REACTIONS (15)
  - Colitis ulcerative [Unknown]
  - Exercise tolerance decreased [Unknown]
  - Fatigue [Unknown]
  - Chills [Unknown]
  - Muscle spasms [Unknown]
  - Abnormal faeces [Unknown]
  - Condition aggravated [Unknown]
  - Rectal haemorrhage [Unknown]
  - Hypoglycaemia [Unknown]
  - COVID-19 [Unknown]
  - Vomiting [Unknown]
  - Headache [Unknown]
  - Diabetes mellitus [Unknown]
  - Malaise [Unknown]
  - Nausea [Unknown]
